FAERS Safety Report 13543110 (Version 1)
Quarter: 2017Q2

REPORT INFORMATION
  Report Type: Spontaneous
  Country: US (occurrence: US)
  Receive Date: 20170512
  Receipt Date: 20170512
  Transmission Date: 20170830
  Serious: Yes (Other)
  Sender: FDA-Public Use
  Company Number: None

PATIENT
  Age: 69 Year
  Sex: Female
  Weight: 54.9 kg

DRUGS (9)
  1. OXYMORPHONE [Suspect]
     Active Substance: OXYMORPHONE
     Indication: PAIN
     Dosage: ?          QUANTITY:180 TABLET(S);?
     Route: 048
     Dates: start: 20170401, end: 20170503
  2. LISINOPRIL. [Concomitant]
     Active Substance: LISINOPRIL
  3. CYMBALTA [Concomitant]
     Active Substance: DULOXETINE HYDROCHLORIDE
  4. TYLENOL PM [Concomitant]
     Active Substance: ACETAMINOPHEN\DIPHENHYDRAMINE
  5. SENOKOT [Concomitant]
     Active Substance: SENNOSIDES
  6. OXYMORPHONE [Suspect]
     Active Substance: OXYMORPHONE
     Indication: INTERVERTEBRAL DISC PROTRUSION
     Dosage: ?          QUANTITY:180 TABLET(S);?
     Route: 048
     Dates: start: 20170401, end: 20170503
  7. OPANA ER [Concomitant]
     Active Substance: OXYMORPHONE HYDROCHLORIDE
  8. TRAMADOL. [Concomitant]
     Active Substance: TRAMADOL
  9. MULTIVIT [Concomitant]
     Active Substance: VITAMINS

REACTIONS (2)
  - Product measured potency issue [None]
  - Drug ineffective [None]

NARRATIVE: CASE EVENT DATE: 20170401
